FAERS Safety Report 22240906 (Version 1)
Quarter: 2023Q2

REPORT INFORMATION
  Report Type: Spontaneous
  Country: US (occurrence: US)
  Receive Date: 20230421
  Receipt Date: 20230421
  Transmission Date: 20230721
  Serious: No
  Sender: FDA-Public Use
  Company Number: US-GALDERMA-US2023005098

PATIENT

DRUGS (6)
  1. PROACTIV MD ADAPALENE ACNE TREATMENT [Suspect]
     Active Substance: ADAPALENE
     Indication: Acne
     Dosage: 1 DOSAGE FORM, QD, THIN LAYER
     Route: 061
     Dates: start: 202303, end: 2023
  2. PROACTIV CLEAR SKIN SPF 30 [Concomitant]
     Active Substance: AVOBENZONE\OCTISALATE\OCTOCRYLENE
     Indication: Acne
     Dosage: 1 DOSAGE FORM, APPLIED AS INSTRUCTED, 1 OR TWO TIME PER WEEK
     Route: 061
     Dates: start: 202303, end: 2023
  3. Proactiv MD Ultra Gentle Cleanser [Concomitant]
     Indication: Acne
     Dosage: 1 DOSAGE FORM, APPLIED AS INSTRUCTED, 1 OR TWO TIME PER WEEK
     Route: 061
     Dates: start: 202303, end: 2023
  4. Proactiv MD Ultra Hydrating Moisturizer [Concomitant]
     Indication: Acne
     Dosage: 1 DOSAGE FORM, APPLIED AS INSTRUCTED, 1 OR TWO TIME PER WEEK
     Route: 061
     Dates: start: 202303, end: 2023
  5. Proactiv Post Acne Dark Mark Relief [Concomitant]
     Indication: Acne
     Dosage: 1 DOSAGE FORM, APPLIED AS INSTRUCTED, 1 OR TWO TIME PER WEEK
     Route: 061
     Dates: start: 202303, end: 2023
  6. Proactiv Post Acne Scar Gel [Concomitant]
     Indication: Acne
     Dosage: 1 DOSAGE FORM, APPLIED AS INSTRUCTED, 1 OR TWO TIME PER WEEK
     Route: 061
     Dates: start: 202303, end: 2023

REACTIONS (2)
  - Skin burning sensation [Not Recovered/Not Resolved]
  - Dry skin [Not Recovered/Not Resolved]

NARRATIVE: CASE EVENT DATE: 20230301
